FAERS Safety Report 6330422-3 (Version None)
Quarter: 2009Q3

REPORT INFORMATION
  Report Type: 
  Country: None (occurrence: None)
  Receive Date: 20090827
  Receipt Date: 20090819
  Transmission Date: 20100115
  Serious: Yes (Hospitalization)
  Sender: FDA-Public Use
  Company Number: US-TYCO HEALTHCARE/MALLINCKRODT-T200901544

PATIENT
  Sex: Male
  Weight: 74.83 kg

DRUGS (5)
  1. ACETAMINOPHEN AND HYDROCODONE BITARTRATE [Suspect]
     Indication: PAIN
     Dosage: 1 AND 1/2 TABLET 4 X DAY
     Route: 048
     Dates: start: 20060101
  2. MS CONTIN [Suspect]
     Indication: PAIN
     Dosage: UNK
     Route: 048
  3. IBUPROFEN [Concomitant]
  4. LEVAQUIN [Concomitant]
  5. MAXIL [Concomitant]
     Indication: MIGRAINE
     Dosage: UNK
     Route: 048

REACTIONS (3)
  - CELLULITIS [None]
  - DRUG SCREEN NEGATIVE [None]
  - OPIATES POSITIVE [None]
